FAERS Safety Report 7076577-7 (Version None)
Quarter: 2010Q4

REPORT INFORMATION
  Report Type: 
  Country: None (occurrence: None)
  Receive Date: 20101029
  Receipt Date: 20101029
  Transmission Date: 20110411
  Serious: Yes (Other)
  Sender: FDA-Public Use
  Company Number: None

PATIENT
  Sex: Female
  Weight: 12.4 kg

DRUGS (2)
  1. AXID [Suspect]
     Indication: GASTROOESOPHAGEAL REFLUX DISEASE
  2. LANSOPRAZOLE [Concomitant]

REACTIONS (2)
  - REFUSAL OF TREATMENT BY PATIENT [None]
  - VOMITING [None]
